FAERS Safety Report 17679325 (Version 1)
Quarter: 2020Q2

REPORT INFORMATION
  Report Type: Spontaneous
  Country: US (occurrence: US)
  Receive Date: 20200416
  Receipt Date: 20200416
  Transmission Date: 20200714
  Serious: No
  Sender: FDA-Public Use
  Company Number: None

PATIENT
  Age: 52 Year
  Sex: Female
  Weight: 54 kg

DRUGS (5)
  1. ESTRADIOL TDS 0.05 PATCH [Concomitant]
  2. FLEXCIN [Concomitant]
  3. DULOXETINE HCL [Concomitant]
     Active Substance: DULOXETINE HYDROCHLORIDE
  4. TERBINAFINE 250MG TABLETS [Suspect]
     Active Substance: TERBINAFINE
     Indication: ONYCHOMYCOSIS
     Dosage: ?          QUANTITY:1 CAPSULE(S);?
     Route: 060
     Dates: start: 20200321, end: 20200406
  5. MULTIVITAMINS [Concomitant]
     Active Substance: VITAMINS

REACTIONS (6)
  - Pruritus [None]
  - Taste disorder [None]
  - Somnolence [None]
  - Headache [None]
  - Oropharyngeal pain [None]
  - Ocular hyperaemia [None]

NARRATIVE: CASE EVENT DATE: 20200321
